FAERS Safety Report 9617680 (Version 1)
Quarter: 2013Q4

REPORT INFORMATION
  Report Type: Report from Study
  Country: US (occurrence: US)
  Receive Date: 20131011
  Receipt Date: 20131011
  Transmission Date: 20140711
  Serious: Yes (Hospitalization, Other)
  Sender: FDA-Public Use
  Company Number: US-ABBVIE-13P-163-1153913-00

PATIENT
  Age: 57 Year
  Sex: Male
  Weight: 86.26 kg

DRUGS (15)
  1. HUMIRA [Suspect]
     Indication: RHEUMATOID ARTHRITIS
     Dates: start: 2004
  2. AMLODIPINE [Concomitant]
     Indication: HYPERTENSION
  3. CARVEDILOL [Concomitant]
     Indication: CARDIAC DISORDER
  4. HYDRALAZINE [Concomitant]
     Indication: PRODUCT USED FOR UNKNOWN INDICATION
  5. LISINOPRIL [Concomitant]
     Indication: HYPERTENSION
  6. LISINOPRIL [Concomitant]
     Indication: CARDIAC DISORDER
  7. LEVOTHYROXINE [Concomitant]
     Indication: BLOOD THYROID STIMULATING HORMONE DECREASED
  8. SERTRALINE [Concomitant]
     Indication: DEPRESSION
  9. PRAMIPEXOLE [Concomitant]
     Indication: RESTLESS LEGS SYNDROME
  10. ATORVASTATIN [Concomitant]
     Indication: BLOOD CHOLESTEROL INCREASED
  11. RANITIDINE [Concomitant]
     Indication: ULCER
  12. RANITIDINE [Concomitant]
     Indication: PROPHYLAXIS
  13. FOLIC ACID [Concomitant]
     Indication: VITAMIN SUPPLEMENTATION
  14. LANTUS [Concomitant]
     Indication: DIABETES MELLITUS
  15. HUMALOG [Concomitant]
     Indication: DIABETES MELLITUS

REACTIONS (6)
  - Renal disorder [Recovered/Resolved]
  - Cardiac disorder [Unknown]
  - Pneumonia [Recovered/Resolved]
  - Myocardial infarction [Unknown]
  - Coronary artery bypass [Recovered/Resolved]
  - Arthralgia [Not Recovered/Not Resolved]
